FAERS Safety Report 5333113-0 (Version None)
Quarter: 2007Q2

REPORT INFORMATION
  Report Type: 
  Country: None (occurrence: None)
  Receive Date: 20070521
  Receipt Date: 20070521
  Transmission Date: 20071010
  Serious: Yes (Other)
  Sender: FDA-Public Use
  Company Number: None

PATIENT
  Age: 47 Year
  Sex: Male
  Weight: 118.3888 kg

DRUGS (1)
  1. LORATADINE [Suspect]
     Indication: CONJUNCTIVITIS
     Dosage: 1 BY MOUTH EVERY DAY  1 YR AGO AND 2 MO AGO
     Route: 048

REACTIONS (1)
  - URTICARIA [None]
